FAERS Safety Report 4317830-7 (Version None)
Quarter: 2004Q1

REPORT INFORMATION
  Report Type: 
  Country: None (occurrence: None)
  Receive Date: 20040316
  Receipt Date: 20040305
  Transmission Date: 20041129
  Serious: Yes (Other)
  Sender: FDA-Public Use
  Company Number: 200412969GDDC

PATIENT
  Age: 75 Year
  Sex: Male
  Weight: 77 kg

DRUGS (8)
  1. FEXOFENADINE HCL [Suspect]
     Indication: DERMATITIS ALLERGIC
     Route: 048
     Dates: start: 20040216, end: 20040216
  2. ATORVASTATIN [Concomitant]
     Route: 048
     Dates: start: 20010125
  3. TERBINAFINE HCL [Concomitant]
     Dates: start: 20040216
  4. DERMOVATE-NN [Concomitant]
     Dates: end: 20031215
  5. EMOLLIENTS AND PROTECTIVES [Concomitant]
     Dates: start: 20030710
  6. PARAFFINS [Concomitant]
     Dates: start: 20030710
  7. DIPROSALIC [Concomitant]
     Dates: start: 20040216
  8. CALMURID [Concomitant]
     Dates: start: 20040216

REACTIONS (4)
  - FEELING ABNORMAL [None]
  - MALAISE [None]
  - PETECHIAE [None]
  - SOMNOLENCE [None]
